FAERS Safety Report 5078272-2 (Version None)
Quarter: 2006Q3

REPORT INFORMATION
  Report Type: 
  Country: None (occurrence: None)
  Receive Date: 20060811
  Receipt Date: 20060801
  Transmission Date: 20061208
  Serious: Yes (Hospitalization)
  Sender: FDA-Public Use
  Company Number: US-JNJFOC-20060600962

PATIENT
  Sex: Female
  Weight: 90.72 kg

DRUGS (6)
  1. DURAGESIC-100 [Suspect]
     Indication: PAIN
     Route: 062
  2. COUMADIN [Concomitant]
     Indication: THROMBOSIS
     Route: 048
  3. NORVASC [Concomitant]
     Indication: HYPERTENSION
     Route: 048
  4. CLONIDINE [Concomitant]
     Indication: HYPERTENSION
     Route: 048
  5. LASIX [Concomitant]
     Indication: OEDEMA PERIPHERAL
     Dosage: 2-40 MG IN AM ORALLY
     Route: 048
  6. OXYCODONE HCL [Concomitant]
     Indication: BREAKTHROUGH PAIN
     Dosage: EVERY FOUR TO SIX HOURS AS NEEDED
     Route: 048

REACTIONS (4)
  - ASTHENIA [None]
  - MENTAL IMPAIRMENT [None]
  - PNEUMONIA [None]
  - THROMBOSIS [None]
